FAERS Safety Report 8770845 (Version 2)
Quarter: 2012Q4

REPORT INFORMATION
  Report Type: 
  Country: DE (occurrence: DE)
  Receive Date: 20120906
  Receipt Date: 20120918
  Transmission Date: 20130627
  Serious: Yes (Hospitalization)
  Sender: FDA-Public Use
  Company Number: DE-PFIZER INC-2012217544

PATIENT
  Age: 44 Year
  Sex: Female
  Weight: 60 kg

DRUGS (5)
  1. PANTOZOL [Suspect]
     Dosage: 40 mg, UNK
     Route: 065
  2. TELFAST [Suspect]
     Dosage: 10 DF, Once
     Dates: start: 20120825
  3. TORASEMIDE [Suspect]
     Dosage: 9 DF, Once
     Dates: start: 20120825
  4. NOVALGIN [Suspect]
     Dosage: 10 gm (13.5 g, single)
     Dates: start: 20120825
  5. KYTTA [Suspect]
     Dosage: 4 DF, Once
     Dates: start: 20120825

REACTIONS (2)
  - Suicide attempt [Unknown]
  - Paraesthesia [Unknown]
